FAERS Safety Report 5066821-X (Version None)
Quarter: 2006Q3

REPORT INFORMATION
  Report Type: 
  Country: None (occurrence: None)
  Receive Date: 20060726
  Receipt Date: 20060712
  Transmission Date: 20061208
  Serious: Yes (Hospitalization)
  Sender: FDA-Public Use
  Company Number: 2006RR-03011

PATIENT
  Age: 69 Year
  Sex: Female

DRUGS (8)
  1. ASPIRIN [Suspect]
     Indication: CEREBROVASCULAR ACCIDENT
     Dosage: 75 MG, QD, ORAL
     Route: 048
     Dates: end: 20060529
  2. DIPYRIDAMOLE [Suspect]
     Indication: CEREBROVASCULAR ACCIDENT
     Dosage: 200 MG, BID, ORAL
     Route: 048
     Dates: end: 20060529
  3. BENDROFLUAZIDE (BENDROFLUMETHIAZIDE) [Concomitant]
  4. HUMAN INSULIN (PRB) [Concomitant]
  5. PERINDOPRIL ERBUMINE [Concomitant]
  6. QUININE SULPHATE (QUININE SULFATE) TABLET [Concomitant]
  7. SIMVASTATIN TABLET (SIMVASTATIN) TABLET [Concomitant]
  8. MULTIVITAMIN [Concomitant]

REACTIONS (5)
  - ASTHENIA [None]
  - DIZZINESS [None]
  - GASTRIC ULCER [None]
  - LETHARGY [None]
  - VOMITING [None]
